FAERS Safety Report 13190251 (Version 1)
Quarter: 2017Q1

REPORT INFORMATION
  Report Type: Spontaneous
  Country: US (occurrence: US)
  Receive Date: 20170206
  Receipt Date: 20170206
  Transmission Date: 20170428
  Serious: Yes (Death)
  Sender: FDA-Public Use
  Company Number: US-PFIZER INC-2016585668

PATIENT
  Age: 76 Year
  Sex: Female

DRUGS (16)
  1. ALEVE [Concomitant]
     Active Substance: NAPROXEN SODIUM
  2. DIOVAN [Concomitant]
     Active Substance: VALSARTAN
  3. FASLODEX [Concomitant]
     Active Substance: FULVESTRANT
  4. PROCARDIA [Concomitant]
     Active Substance: NIFEDIPINE
  5. PREDNISONE. [Concomitant]
     Active Substance: PREDNISONE
  6. XALATAN [Concomitant]
     Active Substance: LATANOPROST
  7. DYAZIDE [Concomitant]
     Active Substance: HYDROCHLOROTHIAZIDE\TRIAMTERENE
  8. TYLENOL [Concomitant]
     Active Substance: ACETAMINOPHEN
  9. STARLIX [Concomitant]
     Active Substance: NATEGLINIDE
  10. IBRANCE [Suspect]
     Active Substance: PALBOCICLIB
     Indication: BREAST CANCER
     Dosage: 75 MG, DAILY
     Route: 048
     Dates: start: 20160907
  11. IBRANCE [Suspect]
     Active Substance: PALBOCICLIB
     Dosage: 75 MG, DAILY
     Route: 048
     Dates: start: 20160907
  12. ADVIL [Concomitant]
     Active Substance: IBUPROFEN
  13. IMITREX [Concomitant]
     Active Substance: SUMATRIPTAN SUCCINATE
  14. JANUVIA [Concomitant]
     Active Substance: SITAGLIPTIN PHOSPHATE
  15. LANTUS [Concomitant]
     Active Substance: INSULIN GLARGINE
  16. PRILOSEC [Concomitant]
     Active Substance: OMEPRAZOLE MAGNESIUM

REACTIONS (2)
  - Product use issue [Unknown]
  - Death [Fatal]

NARRATIVE: CASE EVENT DATE: 20160907
